FAERS Safety Report 14411047 (Version 1)
Quarter: 2018Q1

REPORT INFORMATION
  Report Type: Spontaneous
  Country: US (occurrence: US)
  Receive Date: 20180119
  Receipt Date: 20180119
  Transmission Date: 20180509
  Serious: Yes (Hospitalization)
  Sender: FDA-Public Use
  Company Number: US-JNJFOC-20180112224

PATIENT
  Age: 16 Year
  Sex: Male
  Weight: 72.58 kg

DRUGS (7)
  1. TOPAMAX [Suspect]
     Active Substance: TOPIRAMATE
     Indication: FOCAL DYSCOGNITIVE SEIZURES
     Route: 048
     Dates: start: 2004
  2. TOPIRAMATE. [Suspect]
     Active Substance: TOPIRAMATE
     Indication: AUTISM SPECTRUM DISORDER
     Route: 048
     Dates: start: 2008
  3. LAMICTAL [Concomitant]
     Active Substance: LAMOTRIGINE
     Indication: PRODUCT USED FOR UNKNOWN INDICATION
     Route: 065
  4. TOPIRAMATE. [Suspect]
     Active Substance: TOPIRAMATE
     Indication: FOCAL DYSCOGNITIVE SEIZURES
     Route: 048
     Dates: start: 2008
  5. VIMPAT [Concomitant]
     Active Substance: LACOSAMIDE
     Indication: PRODUCT USED FOR UNKNOWN INDICATION
     Route: 065
     Dates: start: 2010
  6. TOPAMAX [Suspect]
     Active Substance: TOPIRAMATE
     Indication: AUTISM SPECTRUM DISORDER
     Route: 048
     Dates: start: 2004
  7. ZYPREXA [Concomitant]
     Active Substance: OLANZAPINE
     Indication: ABNORMAL BEHAVIOUR
     Route: 065
     Dates: start: 2010

REACTIONS (2)
  - Epilepsy [Recovered/Resolved]
  - Drug dose omission [Unknown]

NARRATIVE: CASE EVENT DATE: 2010
